FAERS Safety Report 5858560-X (Version None)
Quarter: 2008Q3

REPORT INFORMATION
  Report Type: 
  Country: None (occurrence: None)
  Receive Date: 20080826
  Receipt Date: 20080815
  Transmission Date: 20090109
  Serious: Yes (Hospitalization)
  Sender: FDA-Public Use
  Company Number: CA-PFIZER INC-2008065302

PATIENT
  Sex: Male
  Weight: 68 kg

DRUGS (10)
  1. XALATAN [Suspect]
     Dosage: TEXT:ONE DROP AT BEDTIME
  2. SEPTRA [Suspect]
  3. VITAMIN B-12 [Concomitant]
  4. ACETAMINOPHEN [Concomitant]
  5. ASAPHEN [Concomitant]
     Indication: CARDIOVASCULAR DISORDER
  6. TAMSULOSIN HCL [Concomitant]
     Indication: HYPERTENSION
  7. OXAZEPAM [Concomitant]
  8. COSOPT [Concomitant]
     Indication: GLAUCOMA
     Dosage: TEXT:ONE DROP TWICE DAILY
  9. ALPHAGAN [Concomitant]
     Indication: GLAUCOMA
     Dosage: TEXT:ONE DROP TWICE DAILY
  10. AVODART [Concomitant]
     Indication: HYPERTENSION

REACTIONS (3)
  - CIRCUMSTANCE OR INFORMATION CAPABLE OF LEADING TO MEDICATION ERROR [None]
  - MUSCLE SPASMS [None]
  - NAUSEA [None]
